FAERS Safety Report 11180296 (Version 1)
Quarter: 2015Q2

REPORT INFORMATION
  Report Type: Spontaneous
  Country: US (occurrence: US)
  Receive Date: 20150611
  Receipt Date: 20150611
  Transmission Date: 20150821
  Serious: Yes (Other)
  Sender: FDA-Public Use
  Company Number: US-PFIZER INC-2015192995

PATIENT
  Sex: Female

DRUGS (1)
  1. LYRICA [Suspect]
     Active Substance: PREGABALIN
     Indication: FIBROMYALGIA
     Dosage: UNK

REACTIONS (6)
  - Myalgia [Unknown]
  - Parkinson^s disease [Unknown]
  - Dysphonia [Unknown]
  - Migraine [Unknown]
  - Peripheral swelling [Unknown]
  - Neuropathy peripheral [Unknown]
